FAERS Safety Report 7731667-8 (Version None)
Quarter: 2011Q3

REPORT INFORMATION
  Report Type: 
  Country: None (occurrence: None)
  Receive Date: 20110906
  Receipt Date: 20110831
  Transmission Date: 20111222
  Serious: Yes (Life-Threatening, Hospitalization)
  Sender: FDA-Public Use
  Company Number: CH-PFIZER INC-2011202977

PATIENT
  Age: 57 Year
  Sex: Female

DRUGS (7)
  1. EFFEXOR XR [Suspect]
     Dosage: 3 G, SINGLE
     Route: 048
     Dates: start: 20101102, end: 20101102
  2. ENALAPRIL MALEATE [Concomitant]
     Indication: HYPERTENSION
     Dosage: 5 MG, 1X/DAY
  3. EFFEXOR XR [Suspect]
     Dosage: 150 MG
     Route: 048
  4. LORAZEPAM [Suspect]
     Dosage: 1 MG
     Route: 048
  5. IMOVANE [Suspect]
     Dosage: 45 MG, SINGLE
     Route: 048
     Dates: start: 20101102, end: 20101102
  6. IMOVANE [Suspect]
     Dosage: 7.5 MG
     Route: 048
  7. LORAZEPAM [Suspect]
     Dosage: 20 MG, SINGLE
     Route: 048
     Dates: start: 20101102, end: 20101102

REACTIONS (5)
  - INTENTIONAL OVERDOSE [None]
  - CONFUSIONAL STATE [None]
  - FATIGUE [None]
  - SUICIDE ATTEMPT [None]
  - MUSCULAR WEAKNESS [None]
